FAERS Safety Report 9351130 (Version 1)
Quarter: 2013Q2

REPORT INFORMATION
  Report Type: Spontaneous
  Country: US (occurrence: US)
  Receive Date: 20130617
  Receipt Date: 20130617
  Transmission Date: 20140414
  Serious: No
  Sender: FDA-Public Use
  Company Number: US-ASTRAZENECA-2013SE40808

PATIENT
  Age: 929 Month
  Sex: Male
  Weight: 95.3 kg

DRUGS (6)
  1. SYMBICORT [Suspect]
     Indication: CHRONIC OBSTRUCTIVE PULMONARY DISEASE
     Dosage: 160/4.5 MCG 2 PUFFS BID
     Route: 055
     Dates: start: 201305
  2. OMEPRAZOLE(LOSEC) [Suspect]
     Route: 048
  3. ALBUTEROL [Concomitant]
     Dosage: 2 PUFFS
  4. CELEBREX [Concomitant]
     Indication: ARTHRITIS
  5. SIMVASTATIN [Concomitant]
     Indication: CARDIAC DISORDER
  6. ASPIRIN [Concomitant]
     Dosage: DAILY

REACTIONS (1)
  - Dysphonia [Unknown]
